FAERS Safety Report 6937717-0 (Version None)
Quarter: 2010Q3

REPORT INFORMATION
  Report Type: 
  Country: None (occurrence: None)
  Receive Date: 20100820
  Receipt Date: 20100820
  Transmission Date: 20110219
  Serious: Yes (Hospitalization)
  Sender: FDA-Public Use
  Company Number: None

PATIENT
  Age: 70 Year
  Sex: Female
  Weight: 83.9154 kg

DRUGS (1)
  1. GENTAMICIN [Suspect]
     Indication: URINARY TRACT INFECTION
     Dosage: 80 MG. PER VIAL Q 12 H IM
     Route: 030
     Dates: start: 20100414, end: 20100418

REACTIONS (2)
  - GAIT DISTURBANCE [None]
  - VESTIBULAR DISORDER [None]
